FAERS Safety Report 7631639-8 (Version None)
Quarter: 2011Q3

REPORT INFORMATION
  Report Type: 
  Country: None (occurrence: None)
  Receive Date: 20110725
  Receipt Date: 20110301
  Transmission Date: 20111222
  Serious: No
  Sender: FDA-Public Use
  Company Number: US-BRISTOL-MYERS SQUIBB COMPANY-15523053

PATIENT
  Age: 77 Year
  Sex: Female
  Weight: 66 kg

DRUGS (11)
  1. ZETIA [Concomitant]
  2. VITAMIN D [Concomitant]
  3. NIACIN [Concomitant]
     Dosage: TABS
  4. SYNTHROID [Concomitant]
  5. LIPITOR [Concomitant]
  6. SLOW-MAG [Concomitant]
     Dosage: 128MG FOR TWO TABLETS 1DF:128MG FOR TWO TABLETS , 4 TABLETS
  7. NON-MEDICINAL PRODUCT [Interacting]
  8. TRILIPIX [Concomitant]
  9. AVALIDE [Suspect]
     Dates: start: 20100701
  10. AMLODIPINE [Concomitant]
  11. COUMADIN [Interacting]
     Indication: ATRIAL FIBRILLATION
     Dosage: THERAPY STARTED 6 YRS AGO 1DF=1.25MG ON MON,WED,FRI;REST OF THE DAYS 2.5MG.

REACTIONS (4)
  - FOOD INTERACTION [None]
  - BLOOD MAGNESIUM DECREASED [None]
  - VITAMIN D DECREASED [None]
  - INTERNATIONAL NORMALISED RATIO DECREASED [None]
